FAERS Safety Report 13074640 (Version 2)
Quarter: 2018Q4

REPORT INFORMATION
  Report Type: Spontaneous
  Country: DE (occurrence: DE)
  Receive Date: 20161230
  Receipt Date: 20181220
  Transmission Date: 20190204
  Serious: Yes (Death, Hospitalization, Other)
  Sender: FDA-Public Use
  Company Number: DE-ACCORD-047007

PATIENT
  Age: 79 Year
  Sex: Female
  Weight: 50 kg

DRUGS (3)
  1. PRAXBIND [Suspect]
     Active Substance: IDARUCIZUMAB
     Indication: HAEMORRHAGE
  2. PRADAXA [Suspect]
     Active Substance: DABIGATRAN ETEXILATE MESYLATE
     Indication: PROPHYLAXIS
     Route: 048
  3. CLOPIDOGREL [Suspect]
     Active Substance: CLOPIDOGREL BISULFATE
     Indication: PROPHYLAXIS
     Dosage: DAILY DOSE: 75 MG MILLIGRAM(S) EVERY DAY

REACTIONS (10)
  - Anaemia [Unknown]
  - Abdominal pain [Unknown]
  - Vomiting [Unknown]
  - Creatinine renal clearance decreased [Unknown]
  - Abdominal discomfort [Unknown]
  - Ileus paralytic [Fatal]
  - Haemorrhage [Fatal]
  - Coagulopathy [Unknown]
  - Rectal perforation [Unknown]
  - Peritonitis [Unknown]
